FAERS Safety Report 5727196-3 (Version None)
Quarter: 2008Q2

REPORT INFORMATION
  Report Type: 
  Country: None (occurrence: None)
  Receive Date: 20080505
  Receipt Date: 20080422
  Transmission Date: 20081010
  Serious: Yes (Hospitalization)
  Sender: FDA-Public Use
  Company Number: PHHO2008FR03296

PATIENT
  Age: 58 Year
  Sex: Female
  Weight: 73 kg

DRUGS (3)
  1. MYFORTIC [Suspect]
     Indication: RENAL TRANSPLANT
     Dosage: 2160 MG / DAY
     Route: 048
     Dates: start: 20071130
  2. MYFORTIC [Suspect]
     Dosage: 1440 MG / DAY
     Route: 048
  3. CORTICOSTEROIDS [Concomitant]
     Indication: RENAL TRANSPLANT
     Dosage: 40 MG / DAY
     Route: 048

REACTIONS (5)
  - DIARRHOEA [None]
  - MALABSORPTION [None]
  - OESOPHAGEAL ULCER [None]
  - PANCREAS INFECTION [None]
  - RENAL FAILURE [None]
